FAERS Safety Report 11669691 (Version 1)
Quarter: 2015Q4

REPORT INFORMATION
  Report Type: Report from Study
  Country: ZA (occurrence: ZA)
  Receive Date: 20151027
  Receipt Date: 20151027
  Transmission Date: 20160304
  Serious: Yes (Hospitalization, Other)
  Sender: FDA-Public Use
  Company Number: ZA-B.I. PHARMACEUTICALS,INC./RIDGEFIELD-2015-BI-58472BI

PATIENT
  Age: 36 Year
  Sex: Female

DRUGS (1)
  1. VIRAMUNE [Suspect]
     Active Substance: NEVIRAPINE
     Indication: HIV INFECTION
     Dosage: (MEAN 16 DAYS FROM NEVIRAPINE INTRODUCTION) OR TO AN INCREASE IN DOSE FROM 100MG TO 200MG DAILY AFTE
     Route: 065

REACTIONS (2)
  - Stevens-Johnson syndrome [Unknown]
  - Foetal death [Unknown]
